FAERS Safety Report 5363234-8 (Version None)
Quarter: 2007Q2

REPORT INFORMATION
  Report Type: 
  Country: None (occurrence: None)
  Receive Date: 20070530
  Receipt Date: 20070116
  Transmission Date: 20071010
  Serious: No
  Sender: FDA-Public Use
  Company Number: 2006PV025604

PATIENT
  Age: 54 Year
  Sex: Female
  Weight: 88.905 kg

DRUGS (6)
  1. BYETTA [Suspect]
     Indication: DIABETES MELLITUS NON-INSULIN-DEPENDENT
     Dosage: 10 MCG;BID;SC ; 10 MCG;BID; SC ; 5 MCG;BID;SC
     Route: 058
     Dates: start: 20061013, end: 20061101
  2. BYETTA [Suspect]
     Indication: DIABETES MELLITUS NON-INSULIN-DEPENDENT
     Dosage: 10 MCG;BID;SC ; 10 MCG;BID; SC ; 5 MCG;BID;SC
     Route: 058
     Dates: start: 20061101, end: 20061228
  3. BYETTA [Suspect]
     Indication: DIABETES MELLITUS NON-INSULIN-DEPENDENT
     Dosage: 10 MCG;BID;SC ; 10 MCG;BID; SC ; 5 MCG;BID;SC
     Route: 058
     Dates: start: 20070104
  4. PEPTO-BISMOL [Suspect]
     Indication: HYPERCHLORHYDRIA
     Dosage: PRN
     Dates: start: 20060901
  5. GLUCOPHAGE [Concomitant]
  6. AMARYL [Concomitant]

REACTIONS (12)
  - BLOOD TRIGLYCERIDES DECREASED [None]
  - DIARRHOEA [None]
  - DYSPEPSIA [None]
  - INJECTION SITE BRUISING [None]
  - INJECTION SITE IRRITATION [None]
  - INJECTION SITE PAIN [None]
  - INJECTION SITE RASH [None]
  - INJECTION SITE URTICARIA [None]
  - MIGRAINE [None]
  - NAUSEA [None]
  - VOMITING [None]
  - WEIGHT DECREASED [None]
